FAERS Safety Report 16663242 (Version 1)
Quarter: 2019Q3

REPORT INFORMATION
  Report Type: Report from Study
  Country: US (occurrence: US)
  Receive Date: 20190802
  Receipt Date: 20190802
  Transmission Date: 20191004
  Serious: No
  Sender: FDA-Public Use
  Company Number: US-EXELIXIS-CABO-19019678

PATIENT
  Sex: Female

DRUGS (11)
  1. CALCIUM +D [Concomitant]
     Active Substance: CALCIUM\VITAMIN D
  2. OXYBUTYNIN CHLORIDE. [Concomitant]
     Active Substance: OXYBUTYNIN CHLORIDE
     Dosage: UNK
  3. COMETRIQ [Suspect]
     Active Substance: CABOZANTINIB S-MALATE
     Indication: THYROID CANCER
     Dosage: UNK
     Route: 048
  4. WARFARIN SODIUM. [Concomitant]
     Active Substance: WARFARIN SODIUM
     Dosage: UNK
  5. AMLODIPINE BESYLATE W/BENAZEPRIL [Concomitant]
     Active Substance: AMLODIPINE BESYLATE\BENAZEPRIL HYDROCHLORIDE
     Dosage: UNK
  6. COMETRIQ [Suspect]
     Active Substance: CABOZANTINIB S-MALATE
     Dosage: 60 MG, QD
     Route: 048
     Dates: start: 20190228
  7. FUROSEMIDE. [Concomitant]
     Active Substance: FUROSEMIDE
     Dosage: UNK
  8. ONDANSETRON ODT DRLA [Concomitant]
     Active Substance: ONDANSETRON
     Dosage: UNK
  9. ASPIRIN. [Concomitant]
     Active Substance: ASPIRIN
     Dosage: UNK
  10. OCUVITE [Concomitant]
     Active Substance: VITAMINS
     Dosage: UNK
  11. SYNTHROID [Concomitant]
     Active Substance: LEVOTHYROXINE SODIUM
     Dosage: UNK

REACTIONS (1)
  - Cataract [Unknown]
